FAERS Safety Report 7474481-3 (Version None)
Quarter: 2011Q2

REPORT INFORMATION
  Report Type: 
  Country: None (occurrence: None)
  Receive Date: 20110512
  Receipt Date: 20110111
  Transmission Date: 20111010
  Serious: No
  Sender: FDA-Public Use
  Company Number: US-BAYER-2011-005290

PATIENT
  Age: 79 Year
  Sex: Female

DRUGS (5)
  1. PRAVASTATIN [Concomitant]
  2. CENTRUM SILVER [Concomitant]
  3. LOSARTAN [Concomitant]
  4. AVELOX [Suspect]
     Indication: INFLUENZA
     Dosage: 400 MG, QD
     Route: 048
     Dates: start: 20110110
  5. TAMIFLU [Concomitant]

REACTIONS (1)
  - MALAISE [None]
